FAERS Safety Report 8821814 (Version 1)
Quarter: 2012Q4

REPORT INFORMATION
  Report Type: 
  Country: US (occurrence: US)
  Receive Date: 20121002
  Receipt Date: 20121002
  Transmission Date: 20130627
  Serious: No
  Sender: FDA-Public Use
  Company Number: US-009507513-1210USA000696

PATIENT
  Age: 64 Year
  Sex: Female

DRUGS (11)
  1. JANUVIA [Suspect]
     Route: 048
  2. AUGMENTIN [Suspect]
  3. GLIPIZIDE [Suspect]
  4. LANTUS [Suspect]
     Dosage: 20 DF, qd
     Route: 058
  5. AVANDIA [Suspect]
     Dosage: 8 mg, bid
     Route: 048
  6. SIMVASTATIN [Concomitant]
  7. NIASPAN [Concomitant]
  8. LEVOTHYROXINE SODIUM [Concomitant]
  9. AMLODIPINE [Concomitant]
  10. FUROSEMIDE [Concomitant]
  11. ENALAPRIL MALEATE [Concomitant]

REACTIONS (11)
  - Paraesthesia [Unknown]
  - Urticaria [Unknown]
  - Muscle spasms [Unknown]
  - Injection site haematoma [Unknown]
  - Muscular weakness [Unknown]
  - Arthralgia [Unknown]
  - Oedema peripheral [Unknown]
  - Stress [Unknown]
  - Pain in extremity [Unknown]
  - Blood glucose increased [Unknown]
  - Joint swelling [Unknown]
